FAERS Safety Report 13776219 (Version 1)
Quarter: 2017Q3

REPORT INFORMATION
  Report Type: Spontaneous
  Country: IT (occurrence: IT)
  Receive Date: 20170720
  Receipt Date: 20170720
  Transmission Date: 20171127
  Serious: Yes (Other)
  Sender: FDA-Public Use
  Company Number: IT-PFIZER INC-1998163

PATIENT
  Age: 91 Year
  Sex: Female
  Weight: 44 kg

DRUGS (1)
  1. EPSOCLAR [Suspect]
     Active Substance: HEPARIN SODIUM
     Indication: THROMBOSIS PROPHYLAXIS
     Dosage: 7500 IU, WEEKLY
     Route: 042
     Dates: start: 20130208, end: 20131001

REACTIONS (1)
  - Raynaud^s phenomenon [Recovered/Resolved]

NARRATIVE: CASE EVENT DATE: 20131001
